FAERS Safety Report 10774816 (Version 8)
Quarter: 2015Q4

REPORT INFORMATION
  Report Type: Spontaneous
  Country: US (occurrence: US)
  Receive Date: 20150209
  Receipt Date: 20151230
  Transmission Date: 20160304
  Serious: Yes (Other)
  Sender: FDA-Public Use
  Company Number: US-009507513-1502USA002010

PATIENT
  Age: 37 Year
  Sex: Female
  Weight: 198.19 kg

DRUGS (1)
  1. ETONOGESTREL IMPLANT- UNKNOWN [Suspect]
     Active Substance: ETONOGESTREL
     Indication: CONTRACEPTION
     Dosage: 1 ROD, STRENGTH 68(UNITS UNSPECIFIED), IN THE SUCULUS BICIPITALIS MEDIALIS(GROOVE BETWEEN BICEPS AND
     Route: 059
     Dates: start: 20111111

REACTIONS (4)
  - Weight decreased [Unknown]
  - Incorrect drug administration duration [Unknown]
  - Gastric bypass [Unknown]
  - Medical device complication [Not Recovered/Not Resolved]

NARRATIVE: CASE EVENT DATE: 20141112
